FAERS Safety Report 23357921 (Version 2)
Quarter: 2024Q1

REPORT INFORMATION
  Report Type: Spontaneous
  Country: ES (occurrence: ES)
  Receive Date: 20240102
  Receipt Date: 20240104
  Transmission Date: 20240409
  Serious: Yes (Other)
  Sender: FDA-Public Use
  Company Number: None

PATIENT
  Age: 47 Year
  Sex: Female
  Weight: 71.9 kg

DRUGS (8)
  1. CARBOPLATIN [Suspect]
     Active Substance: CARBOPLATIN
     Indication: Ovarian cancer
     Dates: start: 20230403
  2. CODEINE PHOSPHATE [Concomitant]
     Active Substance: CODEINE PHOSPHATE
     Indication: Pain
     Dates: start: 20230605, end: 20230902
  3. GEMCITABINE [Concomitant]
     Active Substance: GEMCITABINE
     Indication: Ovarian cancer
     Dosage: 1000 MG/M2 ON DAYS 1 AND 8 OF THE CYCLE
     Dates: start: 20231017
  4. FERROUS SULFATE [Concomitant]
     Active Substance: FERROUS SULFATE
     Indication: Anaemia
     Dosage: 1 TABLET EVERY 8 HOURS
     Dates: start: 20230515
  5. MOTILIUM [Concomitant]
     Active Substance: DOMPERIDONE
     Indication: Vomiting
     Dates: start: 20230331
  6. PACLITAXEL [Concomitant]
     Active Substance: PACLITAXEL
     Indication: Ovarian cancer
     Dosage: 175 MG/M2 EVERY 21 DAYS
     Dates: start: 20230403
  7. INACID [Concomitant]
     Indication: Analgesic therapy
     Dosage: 25 MG EVERY 8 HOURS
     Dates: start: 20230329
  8. FAMOTIDINE [Concomitant]
     Active Substance: FAMOTIDINE
     Indication: Prophylaxis against gastrointestinal ulcer
     Dates: start: 20230821

REACTIONS (4)
  - Rash [Recovered/Resolved]
  - Transfusion-associated dyspnoea [Recovered/Resolved]
  - Vomiting [Recovered/Resolved]
  - Nausea [Recovered/Resolved]

NARRATIVE: CASE EVENT DATE: 20231108
